FAERS Safety Report 19641391 (Version 1)
Quarter: 2021Q3

REPORT INFORMATION
  Report Type: Spontaneous
  Country: KR (occurrence: KR)
  Receive Date: 20210730
  Receipt Date: 20210730
  Transmission Date: 20211014
  Serious: Yes (Death, Hospitalization)
  Sender: FDA-Public Use
  Company Number: KR-JNJFOC-20210743940

PATIENT
  Age: 22 Year
  Sex: Female

DRUGS (10)
  1. CLONAZEPAM. [Concomitant]
     Active Substance: CLONAZEPAM
  2. INDENOL [Concomitant]
     Active Substance: PROPRANOLOL HYDROCHLORIDE
  3. SPRAVATO [Suspect]
     Active Substance: ESKETAMINE
     Indication: PERSISTENT DEPRESSIVE DISORDER
     Dosage: WEEK 1?WEEK 4
  4. ETIZOLAM [Concomitant]
     Active Substance: ETIZOLAM
  5. ESCITALOPRAM [Concomitant]
     Active Substance: ESCITALOPRAM OXALATE
  6. SPRAVATO [Suspect]
     Active Substance: ESKETAMINE
     Dosage: WEEK 5
  7. QUETIAPINE. [Concomitant]
     Active Substance: QUETIAPINE
  8. AGOMELATINE [Concomitant]
     Active Substance: AGOMELATINE
  9. LITHIUM. [Concomitant]
     Active Substance: LITHIUM
  10. ARIPIPRAZOLE. [Concomitant]
     Active Substance: ARIPIPRAZOLE

REACTIONS (2)
  - Hospitalisation [Unknown]
  - Completed suicide [Fatal]

NARRATIVE: CASE EVENT DATE: 20210716
